FAERS Safety Report 8328478-1 (Version None)
Quarter: 2012Q2

REPORT INFORMATION
  Report Type: 
  Country: None (occurrence: None)
  Receive Date: 20120502
  Receipt Date: 20120502
  Transmission Date: 20120825
  Serious: No
  Sender: FDA-Public Use
  Company Number: None

PATIENT
  Age: 30 Year
  Sex: Female
  Weight: 49.895 kg

DRUGS (1)
  1. MONISTAT [Suspect]
     Indication: VULVOVAGINAL MYCOTIC INFECTION
     Dosage: |STRENGTH: 1200MG||FREQ: ONE DOSE AT NIGHT||ROUTE: VAGINAL|
     Route: 067
     Dates: start: 20120429, end: 20120430

REACTIONS (6)
  - APPLICATION SITE REACTION [None]
  - VAGINAL HAEMORRHAGE [None]
  - APPLICATION SITE VESICLES [None]
  - APPLICATION SITE INFLAMMATION [None]
  - CHEMICAL BURN OF SKIN [None]
  - GENITAL HAEMORRHAGE [None]
